FAERS Safety Report 14142046 (Version 1)
Quarter: 2017Q4

REPORT INFORMATION
  Report Type: Spontaneous
  Country: JP (occurrence: JP)
  Receive Date: 20171030
  Receipt Date: 20171030
  Transmission Date: 20180321
  Serious: Yes (Other)
  Sender: FDA-Public Use
  Company Number: JP-HQ SPECIALTY-JP-2017INT000376

PATIENT
  Age: 73 Year
  Sex: Male

DRUGS (3)
  1. RADIOTHERAPY [Suspect]
     Active Substance: RADIATION THERAPY
     Indication: LUNG SQUAMOUS CELL CARCINOMA STAGE III
     Dosage: THORACIC IRRADIATION AT A DAILY DOSE OF 2 GY.
     Route: 065
  2. DOCETAXEL. [Suspect]
     Active Substance: DOCETAXEL
     Indication: LUNG SQUAMOUS CELL CARCINOMA STAGE III
     Dosage: 30 MG/M2, ADMINISTERED ON DAYS 1 AND 8
     Route: 065
  3. CISPLATIN. [Suspect]
     Active Substance: CISPLATIN
     Indication: LUNG SQUAMOUS CELL CARCINOMA STAGE III
     Dosage: 40 MG/M2, ADMINISTERED ON DAYS 1 AND 8
     Route: 065

REACTIONS (1)
  - Oesophagobronchial fistula [Recovered/Resolved]
